FAERS Safety Report 25880584 (Version 1)
Quarter: 2025Q4

REPORT INFORMATION
  Report Type: Spontaneous
  Country: EU (occurrence: EU)
  Receive Date: 20251004
  Receipt Date: 20251004
  Transmission Date: 20260118
  Serious: Yes (Hospitalization)
  Sender: ACCORD
  Company Number: None

PATIENT
  Age: 77 Year
  Sex: Female
  Weight: 80 kg

DRUGS (7)
  1. CISPLATIN [Suspect]
     Active Substance: CISPLATIN
     Indication: Cholangiocarcinoma
     Dates: start: 202505, end: 20250718
  2. GEMCITABINE [Suspect]
     Active Substance: GEMCITABINE
     Indication: Cholangiocarcinoma
     Dates: start: 202505, end: 20250718
  3. DURVALUMAB [Suspect]
     Active Substance: DURVALUMAB
     Indication: Cholangiocarcinoma
     Dates: start: 202505, end: 20250718
  4. LEVOTHYROXINE [Concomitant]
     Active Substance: LEVOTHYROXINE
  5. PANCRELIPASE [Concomitant]
     Active Substance: PANCRELIPASE
  6. ALPRAZOLAM [Concomitant]
     Active Substance: ALPRAZOLAM
     Dates: end: 20250805
  7. CANDESARTAN CILEXETIL [Concomitant]
     Active Substance: CANDESARTAN CILEXETIL

REACTIONS (1)
  - Myocarditis-myositis-myasthenia gravis overlap syndrome [Recovering/Resolving]

NARRATIVE: CASE EVENT DATE: 20250726
